FAERS Safety Report 5821186-8 (Version None)
Quarter: 2008Q3

REPORT INFORMATION
  Report Type: 
  Country: None (occurrence: None)
  Receive Date: 20080724
  Receipt Date: 20080718
  Transmission Date: 20090109
  Serious: Yes (Hospitalization, Other)
  Sender: FDA-Public Use
  Company Number: US-ABBOTT-08P-163-0460276-00

PATIENT
  Sex: Female
  Weight: 99.88 kg

DRUGS (4)
  1. HUMIRA [Suspect]
     Indication: RHEUMATOID ARTHRITIS
     Route: 058
  2. HUMIRA [Suspect]
     Indication: PSORIATIC ARTHROPATHY
     Dates: start: 20030101
  3. VANCOMYCIN HCL [Interacting]
     Indication: WOUND INFECTION
     Route: 042
     Dates: start: 20080501, end: 20080501
  4. METHOTREXATE [Concomitant]
     Indication: PSORIATIC ARTHROPATHY
     Route: 048

REACTIONS (10)
  - ALOPECIA [None]
  - CELLULITIS [None]
  - DELIRIUM [None]
  - DRUG INTERACTION [None]
  - HYPOAESTHESIA [None]
  - OEDEMA PERIPHERAL [None]
  - ONYCHOCLASIS [None]
  - PAIN IN EXTREMITY [None]
  - SKIN EXFOLIATION [None]
  - WOUND INFECTION [None]
